FAERS Safety Report 4967946-7 (Version None)
Quarter: 2006Q2

REPORT INFORMATION
  Report Type: 
  Country: None (occurrence: None)
  Receive Date: 20060410
  Receipt Date: 20060403
  Transmission Date: 20061013
  Serious: Yes (Congenital Anomaly)
  Sender: FDA-Public Use
  Company Number: PHBS2006ZA05004

PATIENT
  Age: 23 Month
  Sex: Male

DRUGS (2)
  1. TEGRETOL [Suspect]
     Route: 064
  2. LAMICTAL [Concomitant]
     Route: 064

REACTIONS (3)
  - DEVELOPMENTAL DELAY [None]
  - DRUG EXPOSURE DURING PREGNANCY [None]
  - MICROCEPHALY [None]
